FAERS Safety Report 9339562 (Version 2)
Quarter: 2013Q2

REPORT INFORMATION
  Report Type: Spontaneous
  Country: GB (occurrence: None)
  Receive Date: 20130605
  Receipt Date: 20130612
  Transmission Date: 20140414
  Serious: Yes (Death)
  Sender: FDA-Public Use
  Company Number: AUR-APL-2013-04560

PATIENT
  Age: 40 Year
  Sex: Female

DRUGS (9)
  1. LAMOTRIGINE [Suspect]
     Indication: PRODUCT USED FOR UNKNOWN INDICATION
     Dosage: 1 DOSAGE FORM IN THE MRNING AND 1.5 IN THE EVENING, UNKNOWN
  2. KEPPRA [Suspect]
     Indication: PRODUCT USED FOR UNKNOWN INDICATION
     Dosage: 1.5 DOSAGE FORM MORNING AND 1.5 EVENING, UNKNOWN
  3. CLONAZEPAM [Suspect]
     Indication: PRODUCT USED FOR UNKNOWN INDICATION
  4. CITALOPRAM [Suspect]
     Indication: PRODUCT USED FOR UNKNOWN INDICATION
  5. VIMPAT [Suspect]
     Indication: PRODUCT USED FOR UNKNOWN INDICATION
     Dosage: MORNING 1 ANF EVENING 1.5 DOSAGE FORM, UNKNOWN
  6. CLOBAZAM [Suspect]
     Indication: PRODUCT USED FOR UNKNOWN INDICATION
  7. DIAMOX [Suspect]
     Indication: PRODUCT USED FOR UNKNOWN INDICATION
     Dosage: 1 DOSAGE FORM MORNING AND 1 IN EVENING UNKNOWN
  8. VALDOXAN [Suspect]
     Indication: PRODUCT USED FOR UNKNOWN INDICATION
  9. LORAZEPAM [Suspect]
     Indication: PRODUCT USED FOR UNKNOWN INDICATION

REACTIONS (6)
  - Completed suicide [None]
  - Toxicity to various agents [None]
  - Pulmonary oedema [None]
  - Liver disorder [None]
  - Cardiotoxicity [None]
  - Incorrect dose administered [None]
